FAERS Safety Report 12832053 (Version 3)
Quarter: 2017Q2

REPORT INFORMATION
  Report Type: Spontaneous
  Country: CA (occurrence: CA)
  Receive Date: 20161010
  Receipt Date: 20170403
  Transmission Date: 20170830
  Serious: Yes (Other)
  Sender: FDA-Public Use
  Company Number: CA-ORION CORPORATION ORION PHARMA-TREX2016-1874

PATIENT
  Age: 79 Year
  Sex: Female

DRUGS (25)
  1. METHOTREXATE (TRADE NAME UNKNOWN) [Suspect]
     Active Substance: METHOTREXATE
     Indication: RHEUMATOID ARTHRITIS
     Route: 065
     Dates: start: 2004
  2. ENBREL [Suspect]
     Active Substance: ETANERCEPT
     Indication: RHEUMATOID ARTHRITIS
     Dosage: STRENGTH: 50 MG/ML
     Route: 065
     Dates: start: 200306, end: 2016
  3. SYNTHROID [Concomitant]
     Active Substance: LEVOTHYROXINE SODIUM
     Route: 065
     Dates: start: 20100630
  4. TRAJENTA [Concomitant]
     Active Substance: LINAGLIPTIN
     Route: 065
  5. VITAMIN D [Concomitant]
     Active Substance: CHOLECALCIFEROL
     Dosage: 1000
     Route: 065
  6. ASPIRIN. [Concomitant]
     Active Substance: ASPIRIN
     Route: 065
  7. ADALAT CC [Concomitant]
     Active Substance: NIFEDIPINE
     Route: 065
  8. ACLASTA [Concomitant]
     Active Substance: ZOLEDRONIC ACID
     Route: 042
     Dates: start: 20111118
  9. NOVO-METOPROL [Concomitant]
     Active Substance: METOPROLOL TARTRATE
     Route: 065
  10. PANTOPRAZOLE [Concomitant]
     Active Substance: PANTOPRAZOLE
     Route: 065
  11. PROBIOTIC [Concomitant]
     Active Substance: PROBIOTICS NOS
     Route: 065
  12. REPAGLINIDE ACTAVIS [Concomitant]
     Active Substance: REPAGLINIDE
     Route: 065
     Dates: start: 20160826
  13. PMS-OXYCODONE [Concomitant]
     Active Substance: OXYCODONE HYDROCHLORIDE
     Dosage: STRENGTH: 5 MG; 1 TO 2 TABLETS EVERY 3 HOURS WHEN NEEDED
     Route: 065
  14. BASAGLAR [Concomitant]
     Active Substance: INSULIN GLARGINE
     Dosage: IN THE MORNING
     Route: 065
  15. COENZYME Q10 [Concomitant]
     Active Substance: UBIDECARENONE
     Route: 065
  16. PREDNISONE. [Concomitant]
     Active Substance: PREDNISONE
     Route: 065
  17. CYMBALTA [Concomitant]
     Active Substance: DULOXETINE HYDROCHLORIDE
     Route: 065
  18. TYLENOL EXTRA STRENGTH [Concomitant]
     Active Substance: ACETAMINOPHEN
     Dosage: 6-8, MAXIMUM 2 AT 1 TIME
     Route: 065
  19. RESTORALAX [Concomitant]
     Active Substance: POLYETHYLENE GLYCOL 3350
     Route: 065
  20. MYRBETRIG [Concomitant]
     Route: 065
     Dates: start: 20150224
  21. CRANBERRY. [Concomitant]
     Active Substance: CRANBERRY
     Route: 065
  22. COLACE [Concomitant]
     Active Substance: DOCUSATE SODIUM
     Indication: FAECES SOFT
     Route: 065
  23. MYRBETRIG [Concomitant]
     Route: 065
  24. LEFLUNOMIDE. [Suspect]
     Active Substance: LEFLUNOMIDE
     Route: 065
     Dates: start: 2006
  25. DIOVAN HCT [Concomitant]
     Active Substance: HYDROCHLOROTHIAZIDE\VALSARTAN
     Dosage: 160/12.5 MG
     Route: 065

REACTIONS (7)
  - Drug intolerance [Not Recovered/Not Resolved]
  - Drug ineffective [Unknown]
  - Post procedural infection [Unknown]
  - Hepatic enzyme increased [Not Recovered/Not Resolved]
  - Urinary tract infection [Unknown]
  - Breast cancer [Unknown]
  - Skin disorder [Not Recovered/Not Resolved]

NARRATIVE: CASE EVENT DATE: 2016
